FAERS Safety Report 22370564 (Version 1)
Quarter: 2023Q2

REPORT INFORMATION
  Report Type: Other
  Country: US (occurrence: US)
  Receive Date: 20230526
  Receipt Date: 20230526
  Transmission Date: 20230722
  Serious: Yes (Hospitalization)
  Sender: FDA-Public Use
  Company Number: US-ALVOGEN-2023091477

PATIENT
  Age: 45 Year
  Sex: Female

DRUGS (3)
  1. TRAZODONE [Suspect]
     Active Substance: TRAZODONE HYDROCHLORIDE
     Indication: Feeling of relaxation
     Dosage: FIVE (100 MG) TRAZODONE TABLETS
  2. BUPROPION [Concomitant]
     Active Substance: BUPROPION
     Indication: Product used for unknown indication
  3. CLONAZEPAM [Concomitant]
     Active Substance: CLONAZEPAM
     Indication: Product used for unknown indication

REACTIONS (8)
  - Toxicity to various agents [Unknown]
  - Overdose [Unknown]
  - Hypotension [Recovered/Resolved]
  - Dizziness [Unknown]
  - Ataxia [Recovered/Resolved]
  - Urinary incontinence [Unknown]
  - Electrocardiogram QT prolonged [Recovering/Resolving]
  - Intentional product misuse [Unknown]
